FAERS Safety Report 8872670 (Version 2)
Quarter: 2012Q4

REPORT INFORMATION
  Report Type: 
  Country: US (occurrence: US)
  Receive Date: 20121029
  Receipt Date: 20121107
  Transmission Date: 20130627
  Serious: Yes (Life-Threatening, Hospitalization, Other)
  Sender: FDA-Public Use
  Company Number: US-ABBOTT-12P-163-1000181-00

PATIENT
  Sex: Female

DRUGS (4)
  1. HUMIRA [Suspect]
     Indication: PSORIASIS
     Dosage: Biweekly
     Route: 050
     Dates: start: 20080417
  2. HUMIRA [Suspect]
     Dosage: Biweekly
     Route: 050
     Dates: end: 20110726
  3. HUMIRA [Suspect]
     Dosage: Monthly
     Route: 050
     Dates: start: 20110726, end: 20111007
  4. INFLUENZA VACCINE [Concomitant]
     Indication: PRODUCT USED FOR UNKNOWN INDICATION
     Dates: start: 20111007, end: 20111007

REACTIONS (20)
  - Histoplasmosis [Unknown]
  - Pneumonia [Unknown]
  - Respiratory failure [Unknown]
  - Renal failure acute [Unknown]
  - Anhedonia [Unknown]
  - Tension [Unknown]
  - Asthenia [Unknown]
  - Loss of employment [Unknown]
  - Psoriasis [Unknown]
  - Fatigue [Unknown]
  - Malaise [Unknown]
  - Decreased appetite [Unknown]
  - Liver function test abnormal [Unknown]
  - Lymphocyte count increased [Unknown]
  - Mononucleosis heterophile test positive [Unknown]
  - Pyrexia [Unknown]
  - Liver function test abnormal [Unknown]
  - Globulins increased [Unknown]
  - Fatigue [Unknown]
  - Alopecia [Unknown]
